FAERS Safety Report 9714287 (Version 2)
Quarter: 2013Q4

REPORT INFORMATION
  Report Type: Spontaneous
  Country: US (occurrence: US)
  Receive Date: 20131126
  Receipt Date: 20131126
  Transmission Date: 20140711
  Serious: No
  Sender: FDA-Public Use
  Company Number: US-GILEAD-2008-0019337

PATIENT
  Age: 79 Year
  Sex: Female

DRUGS (15)
  1. LETAIRIS [Suspect]
     Indication: PULMONARY ARTERIAL HYPERTENSION
     Route: 048
     Dates: start: 20080815
  2. LETAIRIS [Suspect]
     Dates: start: 20080925, end: 20081202
  3. OXYGEN [Concomitant]
  4. WARFARIN [Concomitant]
  5. BENICAR [Concomitant]
  6. CRESTOR [Concomitant]
  7. ACTONEL [Concomitant]
  8. SPIRIVA [Concomitant]
  9. VALIUM [Concomitant]
  10. OSCAL [Concomitant]
  11. VITAMIN B [Concomitant]
  12. VITAMIN C [Concomitant]
  13. VITAMIN E [Concomitant]
  14. FLAXSEED OIL [Concomitant]
  15. FISH OIL [Concomitant]

REACTIONS (3)
  - Blood count abnormal [Unknown]
  - Drug ineffective [Unknown]
  - Nasal congestion [Unknown]
